FAERS Safety Report 21556676 (Version 1)
Quarter: 2022Q4

REPORT INFORMATION
  Report Type: Spontaneous
  Country: CN (occurrence: CN)
  Receive Date: 20221104
  Receipt Date: 20221104
  Transmission Date: 20230113
  Serious: Yes (Other)
  Sender: FDA-Public Use
  Company Number: None

PATIENT
  Age: 26 Year
  Sex: Male
  Weight: 53 kg

DRUGS (6)
  1. CYCLOPHOSPHAMIDE [Suspect]
     Active Substance: CYCLOPHOSPHAMIDE
     Indication: Lymphocytic leukaemia
     Dosage: 1000 MG, QD DILUTED WITH 100 ML OF 0.9% SODIUM CHLORIDE INJECTION
     Route: 041
     Dates: start: 20220927, end: 20220927
  2. SODIUM CHLORIDE [Suspect]
     Active Substance: SODIUM CHLORIDE
     Indication: Medication dilution
     Dosage: 100 ML, QD USED TO DILUTE 1000 MG OF CYCLOPHOSPHAMIDE
     Route: 041
     Dates: start: 20220927, end: 20220927
  3. SODIUM CHLORIDE [Suspect]
     Active Substance: SODIUM CHLORIDE
     Dosage: 250 ML, QD USED TO DILUTE 60 MG OF DAUNORUBICIN HYDROCHLORIDE
     Route: 041
     Dates: start: 20220927, end: 20220929
  4. SODIUM CHLORIDE [Suspect]
     Active Substance: SODIUM CHLORIDE
     Dosage: 180 ML, QD, USED TO DILUTE 2 MG OF VINCRISTINE SULFATE FOR INJECTION
     Route: 041
     Dates: start: 20220927, end: 20220927
  5. DAUNORUBICIN HYDROCHLORIDE [Suspect]
     Active Substance: DAUNORUBICIN HYDROCHLORIDE
     Indication: Lymphocytic leukaemia
     Dosage: 60 MG, QD DILUTED WITH 250 ML OF 0.9% SODIUM CHLORIDE INJECTION
     Route: 041
     Dates: start: 20220927, end: 20220929
  6. VINCRISTINE SULFATE [Suspect]
     Active Substance: VINCRISTINE SULFATE
     Indication: Lymphocytic leukaemia
     Dosage: 2 MG, QD DILUTED WITH 180 ML OF SODIUM CHLORIDE INJECTION
     Route: 041
     Dates: start: 20220927, end: 20220927

REACTIONS (2)
  - Myelosuppression [Recovering/Resolving]
  - Platelet count decreased [Recovering/Resolving]

NARRATIVE: CASE EVENT DATE: 20221008
